FAERS Safety Report 11240518 (Version 2)
Quarter: 2015Q3

REPORT INFORMATION
  Report Type: Report from Study
  Country: BR (occurrence: BR)
  Receive Date: 20150706
  Receipt Date: 20150805
  Transmission Date: 20151125
  Serious: Yes (Other)
  Sender: FDA-Public Use
  Company Number: PHHY2014BR169897

PATIENT
  Age: 29 Year
  Sex: Female
  Weight: 71 kg

DRUGS (3)
  1. SANDOSTATIN LAR DEPOT [Suspect]
     Active Substance: OCTREOTIDE ACETATE
     Indication: ACROMEGALY
     Dosage: 1 DF, QMO (EVERY 28 DAYS)
     Route: 030
     Dates: start: 20140325, end: 20141115
  2. SANDOSTATIN LAR DEPOT [Suspect]
     Active Substance: OCTREOTIDE ACETATE
     Dosage: 30 MG, QMO (EVERY 28 DAYS)
     Route: 030
     Dates: start: 201502
  3. CABERGOLINE. [Concomitant]
     Active Substance: CABERGOLINE
     Indication: ACROMEGALY
     Dosage: 2 DF, TIW
     Route: 048
     Dates: start: 201410

REACTIONS (4)
  - Maternal exposure during pregnancy [Unknown]
  - Abortion incomplete [Recovered/Resolved]
  - Neoplasm [Recovering/Resolving]
  - Neoplasm progression [Recovering/Resolving]

NARRATIVE: CASE EVENT DATE: 201501
